FAERS Safety Report 16780810 (Version 1)
Quarter: 2019Q3

REPORT INFORMATION
  Report Type: Spontaneous
  Country: FR (occurrence: FR)
  Receive Date: 20190906
  Receipt Date: 20190906
  Transmission Date: 20191005
  Serious: Yes (Hospitalization)
  Sender: FDA-Public Use
  Company Number: FR-MYLANLABS-2019M1083408

PATIENT
  Age: 79 Year
  Sex: Female
  Weight: 73 kg

DRUGS (1)
  1. BISOPROLOL [Suspect]
     Active Substance: BISOPROLOL
     Indication: HYPERTENSION
     Dosage: 12.5 MILLIGRAM, QD
     Route: 048
     Dates: start: 20190512

REACTIONS (2)
  - Lung disorder [Recovered/Resolved]
  - Bronchospasm [Recovering/Resolving]

NARRATIVE: CASE EVENT DATE: 201906
